FAERS Safety Report 6427093-4 (Version None)
Quarter: 2009Q4

REPORT INFORMATION
  Report Type: 
  Country: None (occurrence: None)
  Receive Date: 20091104
  Receipt Date: 20091027
  Transmission Date: 20100525
  Serious: Yes (Life-Threatening)
  Sender: FDA-Public Use
  Company Number: BE-BRISTOL-MYERS SQUIBB COMPANY-14842405

PATIENT
  Age: 77 Year
  Sex: Male
  Weight: 80 kg

DRUGS (7)
  1. GLUCOPHAGE [Suspect]
     Indication: DIABETES MELLITUS
     Route: 048
     Dates: end: 20090920
  2. MICARDIS HCT [Concomitant]
     Dosage: 1DF-80/12.5 MG
     Route: 048
     Dates: end: 20090920
  3. MOXONIDINE [Concomitant]
     Route: 048
     Dates: end: 20090920
  4. ZANIDIP [Concomitant]
     Route: 048
     Dates: end: 20090920
  5. ASAFLOW [Concomitant]
     Route: 048
     Dates: end: 20090920
  6. CRESTOR [Concomitant]
     Route: 048
     Dates: end: 20090920
  7. MIXTARD HUMAN 70/30 [Concomitant]
     Indication: DIABETES MELLITUS
     Dosage: MIXTARD 30 INJ 1DF-12E IN THE MORNING 8E IN THE EVENING
     Route: 058
     Dates: end: 20090920

REACTIONS (7)
  - ARRHYTHMIA [None]
  - CARDIAC ARREST [None]
  - DIARRHOEA [None]
  - HYPERKALAEMIA [None]
  - LACTIC ACIDOSIS [None]
  - RENAL FAILURE [None]
  - VOMITING [None]
